FAERS Safety Report 7730069-8 (Version None)
Quarter: 2011Q3

REPORT INFORMATION
  Report Type: 
  Country: None (occurrence: None)
  Receive Date: 20110906
  Receipt Date: 20110826
  Transmission Date: 20111222
  Serious: Yes (Hospitalization)
  Sender: FDA-Public Use
  Company Number: PHHY2011JP76944

PATIENT

DRUGS (2)
  1. METOPIRONE [Suspect]
     Indication: CUSHING'S SYNDROME
     Dosage: 750 MG, UNK
     Route: 048
  2. DECADRON [Interacting]
     Dosage: 0.5 MG, UNK
     Route: 048

REACTIONS (2)
  - BLOOD CORTISOL INCREASED [None]
  - DRUG INTERACTION [None]
